FAERS Safety Report 6696145-6 (Version None)
Quarter: 2010Q2

REPORT INFORMATION
  Report Type: 
  Country: None (occurrence: None)
  Receive Date: 20100426
  Receipt Date: 20100422
  Transmission Date: 20101027
  Serious: Yes (Life-Threatening)
  Sender: FDA-Public Use
  Company Number: FR-ASTRAZENECA-2010SE17967

PATIENT
  Age: 7716 Day
  Sex: Male

DRUGS (16)
  1. MOPRAL [Suspect]
     Route: 048
     Dates: end: 20100408
  2. MINOCYCLINE HCL [Suspect]
     Route: 048
     Dates: start: 20091201, end: 20100408
  3. RIFADIN [Suspect]
     Route: 048
     Dates: start: 20091201
  4. MYFORTIC [Suspect]
     Dosage: 24102009
     Route: 048
     Dates: start: 20091024
  5. PROGRAF [Suspect]
     Route: 048
     Dates: start: 20090701, end: 20100408
  6. AMLOR [Suspect]
     Route: 065
  7. SECTRAL [Suspect]
     Route: 065
  8. FUNGIZONE [Concomitant]
     Route: 048
  9. CORTANCYL [Concomitant]
  10. MOTILIUM [Concomitant]
  11. UNALPHA [Concomitant]
  12. CACIT D3 [Concomitant]
  13. ROVALCYTE [Concomitant]
  14. SPECIAFOLDINE [Concomitant]
  15. FUMAFER [Concomitant]
  16. NEORECORMON [Concomitant]

REACTIONS (1)
  - PANCREATITIS NECROTISING [None]
